FAERS Safety Report 4841950-1 (Version None)
Quarter: 2005Q4

REPORT INFORMATION
  Report Type: 
  Country: None (occurrence: None)
  Receive Date: 20051130
  Receipt Date: 20051011
  Transmission Date: 20060501
  Serious: No
  Sender: FDA-Public Use
  Company Number: US-GLAXOSMITHKLINE-A0577844A

PATIENT
  Sex: Female

DRUGS (6)
  1. WELLBUTRIN [Suspect]
     Indication: DEPRESSION
     Dosage: 450MG PER DAY
     Route: 048
     Dates: start: 20051009, end: 20051010
  2. LORTAB [Concomitant]
  3. CLONAZEPAM [Concomitant]
  4. BENTYL [Concomitant]
  5. PREVACID [Concomitant]
  6. MAXALT [Concomitant]

REACTIONS (7)
  - DISTURBANCE IN ATTENTION [None]
  - DYSPNOEA [None]
  - MEDICATION ERROR [None]
  - MIGRAINE [None]
  - NAUSEA [None]
  - RHINORRHOEA [None]
  - SINUSITIS [None]
